FAERS Safety Report 11471192 (Version 2)
Quarter: 2015Q3

REPORT INFORMATION
  Report Type: Spontaneous
  Country: US (occurrence: US)
  Receive Date: 20150903
  Receipt Date: 20150903
  Transmission Date: 20151125
  Serious: No
  Sender: FDA-Public Use
  Company Number: US-ELI_LILLY_AND_COMPANY-US201201008343

PATIENT
  Age: 61 Year
  Sex: Female

DRUGS (4)
  1. CYMBALTA [Suspect]
     Active Substance: DULOXETINE HYDROCHLORIDE
     Dosage: 60 MG, QOD
  2. CYMBALTA [Suspect]
     Active Substance: DULOXETINE HYDROCHLORIDE
     Dosage: 60 MG, BID
     Dates: start: 20110901
  3. CYMBALTA [Suspect]
     Active Substance: DULOXETINE HYDROCHLORIDE
     Dosage: 60 MG, EACH EVENING
  4. CYMBALTA [Suspect]
     Active Substance: DULOXETINE HYDROCHLORIDE
     Indication: PAIN
     Dosage: 60 MG, QD
     Dates: start: 20110825, end: 20110831

REACTIONS (12)
  - Poor quality sleep [Recovered/Resolved]
  - Decreased activity [Recovering/Resolving]
  - Dizziness [Unknown]
  - Negative thoughts [Recovering/Resolving]
  - Oral mucosal eruption [Recovered/Resolved]
  - Thinking abnormal [Recovering/Resolving]
  - Nightmare [Recovering/Resolving]
  - Oral mucosal blistering [Recovered/Resolved]
  - Stomatitis [Recovered/Resolved]
  - Feeling abnormal [Recovering/Resolving]
  - Confusional state [Recovering/Resolving]
  - Intentional product misuse [Recovered/Resolved]
